FAERS Safety Report 7470933-0 (Version None)
Quarter: 2011Q2

REPORT INFORMATION
  Report Type: 
  Country: None (occurrence: None)
  Receive Date: 20110510
  Receipt Date: 20110503
  Transmission Date: 20111010
  Serious: No
  Sender: FDA-Public Use
  Company Number: US-PFIZER INC-2011094269

PATIENT
  Sex: Male

DRUGS (3)
  1. LISDEXAMFETAMINE DIMESYLATE [Concomitant]
     Indication: ATTENTION DEFICIT/HYPERACTIVITY DISORDER
     Dosage: 30 MG, DAY
     Route: 048
  2. GENOTROPIN [Suspect]
     Indication: GROWTH HORMONE DEFICIENCY
     Dosage: 2 MG, 1X/DAY
     Dates: start: 20110301
  3. MELATONIN [Concomitant]
     Indication: SLEEP DISORDER
     Dosage: AS NEEDED
     Route: 048

REACTIONS (2)
  - SEASONAL ALLERGY [None]
  - NASOPHARYNGITIS [None]
